FAERS Safety Report 5679020-5 (Version None)
Quarter: 2008Q1

REPORT INFORMATION
  Report Type: 
  Country: None (occurrence: None)
  Receive Date: 20080321
  Receipt Date: 20080313
  Transmission Date: 20080703
  Serious: Yes (Other)
  Sender: FDA-Public Use
  Company Number: 2008S1001922

PATIENT
  Age: 2 Year
  Sex: Female
  Weight: 22.6799 kg

DRUGS (1)
  1. PEDIA LAX GLYCERIN SUPPOSITORIES [Suspect]
     Indication: LAXATIVE SUPPORTIVE CARE
     Dosage: 1 GM;X1;RTL
     Route: 054
     Dates: start: 20080313, end: 20080313

REACTIONS (2)
  - DRUG INEFFECTIVE [None]
  - FAECALOMA [None]
